FAERS Safety Report 24639378 (Version 1)
Quarter: 2024Q4

REPORT INFORMATION
  Report Type: Spontaneous
  Country: US (occurrence: US)
  Receive Date: 20241119
  Receipt Date: 20241119
  Transmission Date: 20250115
  Serious: No
  Sender: BOEHRINGER INGELHEIM
  Company Number: ES-BoehringerIngelheim-2024-BI-063176

PATIENT

DRUGS (1)
  1. MELOXICAM [Suspect]
     Active Substance: MELOXICAM
     Indication: Musculoskeletal disorder

REACTIONS (2)
  - Tinnitus [Unknown]
  - Drug ineffective [Unknown]
